FAERS Safety Report 4893760-7 (Version None)
Quarter: 2006Q1

REPORT INFORMATION
  Report Type: 
  Country: None (occurrence: None)
  Receive Date: 20060127
  Receipt Date: 20060103
  Transmission Date: 20060701
  Serious: Yes (Hospitalization)
  Sender: FDA-Public Use
  Company Number: US-AMGEN-KDL163456

PATIENT
  Sex: Female

DRUGS (6)
  1. ENBREL [Suspect]
     Indication: ANKYLOSING SPONDYLITIS
     Route: 058
     Dates: start: 20051107
  2. AZULFIDINE [Concomitant]
     Dates: start: 19950101
  3. PROTONIX [Concomitant]
  4. DIOVAN [Concomitant]
  5. LIPITOR [Concomitant]
  6. SYNTHROID [Concomitant]

REACTIONS (13)
  - CHEST DISCOMFORT [None]
  - CHEST PAIN [None]
  - CONDITION AGGRAVATED [None]
  - DIZZINESS [None]
  - ELECTROCARDIOGRAM CHANGE [None]
  - ELECTROCARDIOGRAM ST-T CHANGE [None]
  - HEADACHE [None]
  - HEART RATE INCREASED [None]
  - HOT FLUSH [None]
  - HYPERHIDROSIS [None]
  - HYPERTENSION [None]
  - NAUSEA [None]
  - SINUS TACHYCARDIA [None]
